FAERS Safety Report 4371968-7 (Version None)
Quarter: 2004Q2

REPORT INFORMATION
  Report Type: 
  Country: None (occurrence: None)
  Receive Date: 20040602
  Receipt Date: 20040526
  Transmission Date: 20050107
  Serious: Yes (Disabling)
  Sender: FDA-Public Use
  Company Number: GBWYE789028MAY04

PATIENT
  Age: 38 Year
  Sex: Female

DRUGS (3)
  1. EFFEXOR [Suspect]
     Indication: DEPRESSION
     Dosage: 75 MG 1X PER 1 DAY ORAL; SEE IMAGE
     Route: 048
     Dates: start: 20031212, end: 20040101
  2. EFFEXOR [Suspect]
     Indication: DEPRESSION
     Dosage: 75 MG 1X PER 1 DAY ORAL; SEE IMAGE
     Route: 048
     Dates: start: 20040102
  3. FLUOXETINE [Concomitant]

REACTIONS (3)
  - HYPERTENSION [None]
  - RETINAL VEIN THROMBOSIS [None]
  - VISUAL DISTURBANCE [None]
